FAERS Safety Report 15929559 (Version 4)
Quarter: 2020Q1

REPORT INFORMATION
  Report Type: Spontaneous
  Country: US (occurrence: US)
  Receive Date: 20190206
  Receipt Date: 20200310
  Transmission Date: 20200409
  Serious: Yes (Other)
  Sender: FDA-Public Use
  Company Number: US-ASTRAZENECA-2018SF65417

PATIENT
  Age: 55 Year
  Sex: Male

DRUGS (14)
  1. NEXIUM [Suspect]
     Active Substance: ESOMEPRAZOLE MAGNESIUM
     Indication: GASTROOESOPHAGEAL REFLUX DISEASE
     Dosage: 20.0MG UNKNOWN
     Route: 048
     Dates: start: 20130401, end: 20150713
  2. TUMS [Concomitant]
     Active Substance: CALCIUM CARBONATE
     Dates: start: 20140919
  3. LEVEMIR [Concomitant]
     Active Substance: INSULIN DETEMIR
     Route: 065
     Dates: start: 20130401
  4. GLIPIZIDE. [Concomitant]
     Active Substance: GLIPIZIDE
     Route: 048
     Dates: start: 20130504
  5. COMBIVENT [Concomitant]
     Active Substance: ALBUTEROL SULFATE\IPRATROPIUM BROMIDE
     Dates: start: 20140919
  6. DIVALPROEX [Concomitant]
     Active Substance: DIVALPROEX SODIUM
     Dosage: 500 MG
     Dates: start: 20131226
  7. NEXIUM [Suspect]
     Active Substance: ESOMEPRAZOLE MAGNESIUM
     Indication: GASTROOESOPHAGEAL REFLUX DISEASE
     Route: 048
     Dates: start: 2008
  8. NEXIUM 24HR [Suspect]
     Active Substance: ESOMEPRAZOLE MAGNESIUM
     Route: 048
  9. TRAMADOL. [Concomitant]
     Active Substance: TRAMADOL
     Dosage: 50 MG
     Route: 048
     Dates: start: 20130401
  10. TRAZODONE [Concomitant]
     Active Substance: TRAZODONE HYDROCHLORIDE
     Dosage: 50 MG
     Dates: start: 20140730
  11. GABAPENTIN. [Concomitant]
     Active Substance: GABAPENTIN
     Dosage: 300 MG
     Route: 048
     Dates: start: 20130401
  12. ABILIFY [Concomitant]
     Active Substance: ARIPIPRAZOLE
     Dosage: 10 MG
     Dates: start: 20131226
  13. NEXIUM [Suspect]
     Active Substance: ESOMEPRAZOLE MAGNESIUM
     Indication: GASTROOESOPHAGEAL REFLUX DISEASE
     Route: 048
     Dates: start: 20130401
  14. LISINOPRIL. [Concomitant]
     Active Substance: LISINOPRIL
     Route: 048
     Dates: start: 20131202

REACTIONS (5)
  - Renal failure [Unknown]
  - Acute kidney injury [Not Recovered/Not Resolved]
  - Chronic kidney disease [Not Recovered/Not Resolved]
  - Renal injury [Unknown]
  - Rebound acid hypersecretion [Unknown]

NARRATIVE: CASE EVENT DATE: 2010
